FAERS Safety Report 22028856 (Version 1)
Quarter: 2023Q1

REPORT INFORMATION
  Report Type: Spontaneous
  Country: US (occurrence: US)
  Receive Date: 20230223
  Receipt Date: 20230223
  Transmission Date: 20230418
  Serious: No
  Sender: FDA-Public Use
  Company Number: US-ABBVIE-4308532

PATIENT
  Sex: Female

DRUGS (3)
  1. SYNTHROID [Suspect]
     Active Substance: LEVOTHYROXINE SODIUM
     Indication: Hypothyroidism
     Dosage: DOSAGE: 75 MCG
     Route: 048
  2. SYNTHROID [Suspect]
     Active Substance: LEVOTHYROXINE SODIUM
     Indication: Hypothyroidism
     Dosage: DOSAGE: 50 MCG
     Route: 048
  3. SYNTHROID [Suspect]
     Active Substance: LEVOTHYROXINE SODIUM
     Indication: Hypothyroidism
     Dosage: DOSAGE: 75 MCG
     Route: 048

REACTIONS (5)
  - Faeces hard [Unknown]
  - Dizziness [Unknown]
  - Blood pressure increased [Recovered/Resolved]
  - Blood pressure increased [Recovered/Resolved]
  - Malaise [Recovered/Resolved]
